FAERS Safety Report 6771485-0 (Version None)
Quarter: 2010Q2

REPORT INFORMATION
  Report Type: 
  Country: None (occurrence: None)
  Receive Date: 20100616
  Receipt Date: 20100607
  Transmission Date: 20101027
  Serious: Yes (Death, Hospitalization)
  Sender: FDA-Public Use
  Company Number: AU-JNJFOC-20090701836

PATIENT
  Sex: Male

DRUGS (6)
  1. REMICADE [Suspect]
     Indication: PSORIASIS
     Route: 042
     Dates: start: 20090501, end: 20090929
  2. REMICADE [Suspect]
     Dosage: FIRST INFUSION
     Route: 042
     Dates: start: 20090501, end: 20090929
  3. REMICADE [Suspect]
     Dosage: 3RD INFUSION
     Route: 042
     Dates: start: 20090501, end: 20090929
  4. RAPTIVA [Suspect]
     Indication: PSORIASIS
  5. NEORAL [Concomitant]
  6. METHOTREXATE [Concomitant]

REACTIONS (3)
  - DEATH [None]
  - METASTATIC MALIGNANT MELANOMA [None]
  - PSORIASIS [None]
